FAERS Safety Report 7085918-6 (Version None)
Quarter: 2010Q4

REPORT INFORMATION
  Report Type: 
  Country: None (occurrence: None)
  Receive Date: 20101105
  Receipt Date: 20101025
  Transmission Date: 20110411
  Serious: Yes (Other)
  Sender: FDA-Public Use
  Company Number: NL-TEVA-253590ISR

PATIENT
  Sex: Male

DRUGS (5)
  1. PREDNISOLONE [Suspect]
     Indication: PROSTATE CANCER METASTATIC
     Route: 048
     Dates: start: 20100115
  2. ABIRATERONE ACETATE- BLINDED (ABIRATERONE ACETATE) [Suspect]
     Indication: PROSTATE CANCER METASTATIC
     Route: 048
     Dates: start: 20100115, end: 20100421
  3. NADROPARIN CALCIUM [Concomitant]
     Route: 058
     Dates: start: 20080401
  4. GOSERELIN [Concomitant]
     Indication: HORMONE THERAPY
     Route: 058
     Dates: start: 20090609
  5. CLONIDINE [Concomitant]
     Indication: HOT FLUSH
     Dates: start: 20090907

REACTIONS (1)
  - HEPATITIS TOXIC [None]
